FAERS Safety Report 21347131 (Version 6)
Quarter: 2023Q4

REPORT INFORMATION
  Report Type: Spontaneous
  Country: BE (occurrence: BE)
  Receive Date: 20220919
  Receipt Date: 20231020
  Transmission Date: 20240109
  Serious: Yes (Life-Threatening, Hospitalization, Other)
  Sender: FDA-Public Use
  Company Number: BE-Waverley Pharma-000562

PATIENT
  Age: 69 Year
  Sex: Female

DRUGS (15)
  1. LENALIDOMIDE [Suspect]
     Active Substance: LENALIDOMIDE
     Indication: Plasma cell myeloma
     Dosage: 25 MILLIGRAM, CYCLICAL (LENALIDOMIDEX)
     Route: 065
  2. LENALIDOMIDE [Suspect]
     Active Substance: LENALIDOMIDE
     Dosage: 525 MILLIGRAM, CYCLICAL,(25 MG (DAYS 1? 21) IN A 28-DAY CYCLE REGIME)
     Route: 065
  3. BORTEZOMIB [Suspect]
     Active Substance: BORTEZOMIB
     Indication: Plasma cell myeloma
     Dosage: 1.3 MG/M2, CYCLICAL
     Route: 065
  4. BORTEZOMIB [Suspect]
     Active Substance: BORTEZOMIB
     Indication: Myocarditis
     Dosage: 5.2 MILLIGRAM/SQ. METER, CYCLICAL,(1.3 MG/M^2 (DAYS 1, 4, 8, 11) IN A 28-DAY CYCLE REGIME)
     Route: 065
  5. BORTEZOMIB [Suspect]
     Active Substance: BORTEZOMIB
     Dosage: 1.3 MG/M2,  ((DAYS 1, 4, 8, 11)
     Route: 065
  6. BORTEZOMIB [Suspect]
     Active Substance: BORTEZOMIB
     Dosage: 1.3 MILLIGRAM/SQ. METER
     Route: 065
  7. DEXAMETHASONE [Suspect]
     Active Substance: DEXAMETHASONE
     Indication: Plasma cell myeloma
     Dosage: 20 MILLIGRAM, CYCLICAL
     Route: 065
  8. DEXAMETHASONE [Suspect]
     Active Substance: DEXAMETHASONE
     Dosage: 160 MILLIGRAM, CYCLICAL
     Route: 065
  9. DEXAMETHASONE [Suspect]
     Active Substance: DEXAMETHASONE
     Indication: Plasma cell myeloma
     Dosage: 20 MILLIGRAM
     Route: 065
  10. DEXAMETHASONE [Suspect]
     Active Substance: DEXAMETHASONE
     Dosage: 160 MILLIGRAM, CYCLICAL,(20 MG (DAYS 1, 2, 8, 9, 15, 16, 22, 23) IN A 28-DAY CYCLE REGIME)
     Route: 065
  11. DEXAMETHASONE [Suspect]
     Active Substance: DEXAMETHASONE
     Indication: Plasma cell myeloma
     Dosage: 160 MILLIGRAM, CYCLICAL,(20 MG (DAYS 1, 2, 8, 9, 15, 16, 22, 23) IN A 28-DAY CYCLE REGIME)
     Route: 065
  12. ENOXAPARIN [Suspect]
     Active Substance: ENOXAPARIN
     Indication: Thrombosis prophylaxis
     Dosage: 40 MILLIGRAM
     Route: 058
  13. ENOXAPARIN [Suspect]
     Active Substance: ENOXAPARIN
     Dosage: 40 MILLIGRAM, ONCE A DAY
     Route: 058
  14. DEXAMETHASONE [Concomitant]
     Active Substance: DEXAMETHASONE
     Indication: Plasma cell myeloma
     Dosage: 20 MILLIGRAM(DAYS 1, 2, 8, 9, 15, 16, 22, 23 )
     Route: 065
  15. ENOXAPARIN [Concomitant]
     Active Substance: ENOXAPARIN
     Indication: Thrombosis prophylaxis
     Dosage: 40 MILLIGRAM, ONCE A DAY
     Route: 058

REACTIONS (14)
  - Ventricular tachycardia [Recovered/Resolved]
  - Left ventricular hypertrophy [Recovered/Resolved]
  - Hepatic enzyme increased [Recovered/Resolved]
  - Hypersensitivity myocarditis [Recovered/Resolved]
  - Diarrhoea [Recovered/Resolved]
  - Abdominal pain [Recovered/Resolved]
  - Vomiting [Recovered/Resolved]
  - Myocarditis [Recovered/Resolved]
  - Nausea [Recovered/Resolved]
  - Toxicity to various agents [Recovered/Resolved]
  - Rash erythematous [Recovered/Resolved]
  - Fatigue [Recovered/Resolved]
  - Pruritus [Recovered/Resolved]
  - Cardiotoxicity [Unknown]
